FAERS Safety Report 6648880-3 (Version None)
Quarter: 2010Q1

REPORT INFORMATION
  Report Type: 
  Country: None (occurrence: None)
  Receive Date: 20100324
  Receipt Date: 20100312
  Transmission Date: 20100710
  Serious: Yes (Hospitalization)
  Sender: FDA-Public Use
  Company Number: IT-PFIZER INC-2009256222

PATIENT
  Age: 61 Year
  Sex: Female

DRUGS (2)
  1. SALAZOPYRIN [Suspect]
     Indication: ARTHRITIS
     Dosage: 500 MG, 3X/DAY
     Route: 048
     Dates: start: 20090601, end: 20090723
  2. MELOXICAM [Concomitant]
     Indication: ARTHRITIS
     Dosage: 15 MG

REACTIONS (3)
  - FEBRILE NEUTROPENIA [None]
  - ORAL FUNGAL INFECTION [None]
  - PYREXIA [None]
